FAERS Safety Report 7606677-1 (Version None)
Quarter: 2011Q3

REPORT INFORMATION
  Report Type: 
  Country: None (occurrence: None)
  Receive Date: 20110713
  Receipt Date: 20110704
  Transmission Date: 20111222
  Serious: Yes (Hospitalization)
  Sender: FDA-Public Use
  Company Number: JP-ROCHE-771222

PATIENT
  Sex: Female
  Weight: 53 kg

DRUGS (10)
  1. FUROSEMIDE [Concomitant]
     Route: 048
  2. URSO 250 [Concomitant]
     Route: 048
  3. PEGASYS [Suspect]
     Indication: HEPATITIS C
     Dosage: DOSAGE IS UNCERTAIN.
     Route: 058
     Dates: start: 20090901, end: 20100303
  4. LACTULOSE [Concomitant]
     Route: 048
  5. AMINOLEBAN [Concomitant]
     Route: 048
  6. LANSOPRAZOLE [Concomitant]
     Route: 048
  7. ZYRTEC [Concomitant]
     Route: 048
  8. DIOVAN [Concomitant]
     Route: 048
  9. COPEGUS [Suspect]
     Indication: HEPATITIS C
     Dosage: DOSAGE IS UNCERTAIN.
     Route: 048
     Dates: start: 20090901, end: 20100303
  10. SPIRONOLACTONE [Concomitant]
     Dosage: DRUG: MACACY-A
     Route: 048

REACTIONS (8)
  - POST PROCEDURAL HYPOTHYROIDISM [None]
  - THYROIDITIS [None]
  - PLATELET COUNT DECREASED [None]
  - AMMONIA INCREASED [None]
  - BASEDOW'S DISEASE [None]
  - HEPATIC CIRRHOSIS [None]
  - PROTHROMBIN TIME PROLONGED [None]
  - BLOOD ALBUMIN DECREASED [None]
